FAERS Safety Report 5391785-9 (Version None)
Quarter: 2007Q3

REPORT INFORMATION
  Report Type: 
  Country: None (occurrence: None)
  Receive Date: 20070717
  Receipt Date: 20070702
  Transmission Date: 20080115
  Serious: Yes (Other)
  Sender: FDA-Public Use
  Company Number: 2007RR-08384

PATIENT
  Age: 42 Year
  Sex: Female

DRUGS (1)
  1. IBUPROFEN [Suspect]
     Dosage: TID

REACTIONS (3)
  - ANAEMIA [None]
  - SMALL INTESTINAL OBSTRUCTION [None]
  - WEIGHT DECREASED [None]
